FAERS Safety Report 4426961-2 (Version None)
Quarter: 2004Q3

REPORT INFORMATION
  Report Type: 
  Country: None (occurrence: None)
  Receive Date: 20040811
  Receipt Date: 20040729
  Transmission Date: 20050211
  Serious: Yes (Other)
  Sender: FDA-Public Use
  Company Number: 2004226511US

PATIENT
  Age: 47 Year
  Sex: Female

DRUGS (3)
  1. PROVERA [Suspect]
     Dates: start: 20010928, end: 20030701
  2. PREMARIN [Suspect]
     Dates: start: 20011012, end: 20030701
  3. PREMPHASE (PREMARIN;CYCRIN 14/14) [Suspect]
     Dates: start: 19990507, end: 20010101

REACTIONS (1)
  - BREAST CANCER FEMALE [None]
